FAERS Safety Report 15338543 (Version 1)
Quarter: 2018Q3

REPORT INFORMATION
  Report Type: Other
  Country: US (occurrence: US)
  Receive Date: 20180831
  Receipt Date: 20180831
  Transmission Date: 20181010
  Serious: No
  Sender: FDA-Public Use
  Company Number: US-INTERCEPT-PMOCA2018001358

PATIENT

DRUGS (6)
  1. A?HYDROCORT [Concomitant]
     Active Substance: HYDROCORTISONE SODIUM SUCCINATE
  2. URSODIOL. [Concomitant]
     Active Substance: URSODIOL
  3. CEVIMELINE. [Concomitant]
     Active Substance: CEVIMELINE
  4. ATORVASTATIN [Concomitant]
     Active Substance: ATORVASTATIN
  5. FLUTICASONE. [Concomitant]
     Active Substance: FLUTICASONE
  6. OCALIVA [Suspect]
     Active Substance: OBETICHOLIC ACID
     Indication: PRIMARY BILIARY CHOLANGITIS
     Dosage: 5 MG, QD
     Route: 048
     Dates: start: 20161123

REACTIONS (1)
  - Pruritus [Not Recovered/Not Resolved]
